FAERS Safety Report 13840458 (Version 4)
Quarter: 2017Q4

REPORT INFORMATION
  Report Type: Report from Study
  Country: CA (occurrence: CA)
  Receive Date: 20170807
  Receipt Date: 20171006
  Transmission Date: 20180320
  Serious: Yes (Other)
  Sender: FDA-Public Use
  Company Number: CA-GLAXOSMITHKLINE-CA2017GSK120449

PATIENT
  Sex: Female

DRUGS (5)
  1. ASMANEX [Suspect]
     Active Substance: MOMETASONE FUROATE
     Indication: PRODUCT USED FOR UNKNOWN INDICATION
     Dosage: UNK
  2. SPIRIVA [Concomitant]
     Active Substance: TIOTROPIUM BROMIDE MONOHYDRATE
     Indication: PRODUCT USED FOR UNKNOWN INDICATION
     Dosage: UNK
  3. SALBUTAMOL SULPHATE [Suspect]
     Active Substance: ALBUTEROL SULFATE
     Indication: PRODUCT USED FOR UNKNOWN INDICATION
     Dosage: UNK UNK, BID
  4. ALVESCO [Suspect]
     Active Substance: CICLESONIDE
     Indication: PRODUCT USED FOR UNKNOWN INDICATION
     Dosage: UNK
  5. OXEZE [Concomitant]
     Active Substance: FORMOTEROL FUMARATE
     Indication: PRODUCT USED FOR UNKNOWN INDICATION
     Dosage: 12 MG, BID

REACTIONS (14)
  - Blood count abnormal [Unknown]
  - Asthma [Unknown]
  - Blood immunoglobulin E decreased [Unknown]
  - Sleep disorder [Unknown]
  - Adverse reaction [Unknown]
  - Pharyngeal disorder [Unknown]
  - Rheumatoid arthritis [Unknown]
  - Oral fungal infection [Unknown]
  - Candida infection [Unknown]
  - Cough [Unknown]
  - Drug intolerance [Unknown]
  - Cardiac disorder [Unknown]
  - Fungal infection [Unknown]
  - Oral disorder [Unknown]
